FAERS Safety Report 19089543 (Version 1)
Quarter: 2021Q2

REPORT INFORMATION
  Report Type: Report from Study
  Country: US (occurrence: US)
  Receive Date: 20210403
  Receipt Date: 20210403
  Transmission Date: 20210717
  Serious: Yes (Other)
  Sender: FDA-Public Use
  Company Number: NVSC2021US069462

PATIENT
  Age: 77 Year
  Sex: Female

DRUGS (1)
  1. ENTRESTO [Suspect]
     Active Substance: SACUBITRIL\VALSARTAN
     Indication: PRODUCT USED FOR UNKNOWN INDICATION
     Dosage: 1 DF, BID
     Route: 048

REACTIONS (8)
  - Depression [Unknown]
  - Rhinorrhoea [Unknown]
  - Memory impairment [Unknown]
  - Cough [Unknown]
  - Blood pressure increased [Unknown]
  - Throat clearing [Unknown]
  - Crying [Unknown]
  - Diabetes mellitus [Unknown]
